FAERS Safety Report 9224594 (Version 1)
Quarter: 2013Q2

REPORT INFORMATION
  Report Type: Spontaneous
  Country: PT (occurrence: None)
  Receive Date: 20130409
  Receipt Date: 20130409
  Transmission Date: 20140414
  Serious: Yes (Death, Other)
  Sender: FDA-Public Use
  Company Number: AUR-APL-2013-02882

PATIENT
  Age: 88 Year
  Sex: Female

DRUGS (1)
  1. AMOXICILLIN + CLAVULANIC ACID [Suspect]
     Indication: CYSTITIS ESCHERICHIA

REACTIONS (10)
  - Megacolon [None]
  - Tachypnoea [None]
  - Mucosal dryness [None]
  - Clostridium difficile infection [None]
  - Blood creatinine increased [None]
  - Blood bicarbonate decreased [None]
  - Blood sodium increased [None]
  - Blood potassium increased [None]
  - Blood urea increased [None]
  - PO2 decreased [None]
